FAERS Safety Report 9626287 (Version 1)
Quarter: 2013Q4

REPORT INFORMATION
  Report Type: Report from Study
  Country: US (occurrence: US)
  Receive Date: 20131016
  Receipt Date: 20131016
  Transmission Date: 20140711
  Serious: Yes (Hospitalization, Other)
  Sender: FDA-Public Use
  Company Number: US-JNJFOC-20131006146

PATIENT
  Sex: Female
  Weight: 78.02 kg

DRUGS (13)
  1. REMICADE [Suspect]
     Indication: CROHN^S DISEASE
     Dosage: STARTED: YEAR AND HALF AGO??STOPPED: APR/MAY-2013
     Route: 042
     Dates: end: 2013
  2. REMICADE [Suspect]
     Indication: CROHN^S DISEASE
     Dosage: STARTED ATLEAST 5 YEARS AGO
     Route: 042
  3. REMICADE [Suspect]
     Indication: CROHN^S DISEASE
     Dosage: START DATE: TWO AND HALF YEARS AFTER STARTING INFLIXIMAB
     Route: 042
  4. PREDNISONE [Concomitant]
     Indication: CROHN^S DISEASE
     Dosage: TAKEN FOR YEARS AND DOSAGE VARIES
     Route: 048
  5. METOPROLOL [Concomitant]
     Indication: HEART RATE INCREASED
     Dosage: STARTED ABOUT 3 YEARS
     Route: 048
  6. COUMADIN [Concomitant]
     Indication: THROMBOSIS
     Dosage: STARTED ABOUT 4 YEARS
     Route: 048
  7. PRAVASTATIN [Concomitant]
     Indication: LIPIDS INCREASED
     Dosage: ABOUT 5 OR 6 YEARS
     Route: 048
  8. INSULIN [Concomitant]
     Indication: DIABETES MELLITUS
     Dosage: SLIDING SCALE, 3 TIMES IF NEEDED??ABOUT 10 YEARS
     Route: 058
  9. PHENERGAN [Concomitant]
     Indication: NAUSEA
     Dosage: AS NEEDED??WAS ON AND OFF FOR OVER 20 YEARS
     Route: 048
  10. ADVAIR DISKUS [Concomitant]
     Indication: ASTHMA
     Dosage: 25-50 MG/ONE PUFF??STARTED ABOUT FIFTEEN YEARS.
     Route: 055
  11. TYLENOL [Concomitant]
     Indication: PREMEDICATION
     Route: 048
     Dates: start: 2013
  12. BENADRYL [Concomitant]
     Indication: PREMEDICATION
     Route: 042
     Dates: start: 2013
  13. SOLU-CORTEF [Concomitant]
     Indication: PREMEDICATION
     Route: 042
     Dates: start: 2013

REACTIONS (7)
  - Respiratory disorder [Recovered/Resolved]
  - Crohn^s disease [Recovered/Resolved]
  - Infusion related reaction [Recovered/Resolved]
  - Dehydration [Recovered/Resolved]
  - Hypertension [Recovered/Resolved]
  - Pyrexia [Recovered/Resolved]
  - Urticaria [Recovered/Resolved]
